FAERS Safety Report 24296767 (Version 1)
Quarter: 2024Q3

REPORT INFORMATION
  Report Type: Spontaneous
  Country: US (occurrence: US)
  Receive Date: 20240909
  Receipt Date: 20240909
  Transmission Date: 20241017
  Serious: No
  Sender: AMGEN
  Company Number: US-AMGEN-USASP2024174868

PATIENT

DRUGS (2)
  1. LUMAKRAS [Suspect]
     Active Substance: SOTORASIB
     Indication: Non-small cell lung cancer
     Dosage: UNK
     Route: 065
  2. LUMAKRAS [Suspect]
     Active Substance: SOTORASIB
     Indication: K-ras gene mutation

REACTIONS (25)
  - Musculoskeletal disorder [Unknown]
  - Reproductive tract disorder [Unknown]
  - Ill-defined disorder [Unknown]
  - Skin disorder [Unknown]
  - Neoplasm [Unknown]
  - Gastrointestinal disorder [Unknown]
  - Hepatobiliary disease [Unknown]
  - Respiratory disorder [Unknown]
  - Nervous system disorder [Unknown]
  - Metabolic disorder [Unknown]
  - Malnutrition [Unknown]
  - Infection [Unknown]
  - Infestation [Unknown]
  - Cardiac disorder [Unknown]
  - Blood disorder [Unknown]
  - Lymphatic disorder [Unknown]
  - Mental disorder [Unknown]
  - Renal disorder [Unknown]
  - Urinary tract disorder [Unknown]
  - Angiopathy [Unknown]
  - Eye disorder [Unknown]
  - Endocrine disorder [Unknown]
  - Inner ear disorder [Unknown]
  - Immune system disorder [Unknown]
  - Ear disorder [Unknown]
